FAERS Safety Report 5898285-8 (Version None)
Quarter: 2008Q3

REPORT INFORMATION
  Report Type: 
  Country: None (occurrence: None)
  Receive Date: 20080925
  Receipt Date: 20070820
  Transmission Date: 20090109
  Serious: No
  Sender: FDA-Public Use
  Company Number: A0673077A

PATIENT
  Age: 61 Year
  Sex: Female

DRUGS (8)
  1. WELLBUTRIN XL [Suspect]
     Indication: DEPRESSION
     Dosage: 300MG PER DAY
     Route: 048
     Dates: start: 20040101, end: 20061201
  2. AVANDAMET [Concomitant]
  3. ZANTAC [Concomitant]
  4. LIPITOR [Concomitant]
  5. NORVASC [Concomitant]
  6. ATACAND [Concomitant]
  7. ARTHROTEC [Concomitant]
  8. FOLIC ACID [Concomitant]

REACTIONS (1)
  - CRYING [None]
